FAERS Safety Report 8387945 (Version 6)
Quarter: 2015Q2

REPORT INFORMATION
  Report Type: Spontaneous
  Country: US (occurrence: US)
  Receive Date: 20120203
  Receipt Date: 20150526
  Transmission Date: 20150821
  Serious: Yes (Other)
  Sender: FDA-Public Use
  Company Number: US-JNJFOC-20120112028

PATIENT
  Age: 16 Year
  Sex: Female
  Weight: 48.08 kg

DRUGS (4)
  1. CONCERTA [Suspect]
     Active Substance: METHYLPHENIDATE HYDROCHLORIDE
     Indication: LEARNING DISABILITY
     Route: 048
     Dates: end: 201201
  2. CONCERTA [Suspect]
     Active Substance: METHYLPHENIDATE HYDROCHLORIDE
     Indication: ATTENTION DEFICIT/HYPERACTIVITY DISORDER
     Route: 048
     Dates: end: 201201
  3. RISPERIDONE. [Suspect]
     Active Substance: RISPERIDONE
     Indication: BIPOLAR II DISORDER
     Dosage: 2 MG IN THE MORNING AND 1 MG IN THE EVENING
     Route: 048
     Dates: start: 201108, end: 201201
  4. PATRIOT RISPERIDONE [Suspect]
     Active Substance: RISPERIDONE
     Indication: BIPOLAR II DISORDER
     Dosage: 2 MG IN THE MORNING AND 1 MG IN THE EVENING
     Route: 048
     Dates: end: 201108

REACTIONS (18)
  - Oropharyngeal pain [Not Recovered/Not Resolved]
  - Brain injury [Not Recovered/Not Resolved]
  - Dry skin [Not Recovered/Not Resolved]
  - Menstrual disorder [Not Recovered/Not Resolved]
  - Attention deficit/hyperactivity disorder [Not Recovered/Not Resolved]
  - Acne [Not Recovered/Not Resolved]
  - Off label use [Recovered/Resolved]
  - Blood triglycerides increased [Not Recovered/Not Resolved]
  - Galactorrhoea [Not Recovered/Not Resolved]
  - Pain [Not Recovered/Not Resolved]
  - Blister [Not Recovered/Not Resolved]
  - Blood glucose increased [Not Recovered/Not Resolved]
  - Breast mass [Not Recovered/Not Resolved]
  - Eye disorder [Unknown]
  - Dizziness [Not Recovered/Not Resolved]
  - Neuroleptic malignant syndrome [Not Recovered/Not Resolved]
  - Infertility [Not Recovered/Not Resolved]
  - Weight fluctuation [Not Recovered/Not Resolved]

NARRATIVE: CASE EVENT DATE: 201108
